FAERS Safety Report 8488344-8 (Version None)
Quarter: 2012Q3

REPORT INFORMATION
  Report Type: 
  Country: None (occurrence: None)
  Receive Date: 20120705
  Receipt Date: 20120703
  Transmission Date: 20120928
  Serious: Yes (Death)
  Sender: FDA-Public Use
  Company Number: PHHY2012FR055439

PATIENT
  Sex: Female
  Weight: 56 kg

DRUGS (5)
  1. IRBESARTAN AND HYDROCHLOROTHIAZIDE [Concomitant]
     Indication: HYPERTENSION
     Dosage: 1 DF, UNK
     Dates: start: 20050101
  2. ZOLEDRONOC ACID [Suspect]
     Indication: OSTEOPOROSIS
     Dosage: UNK UKN, UNK
     Route: 042
     Dates: start: 20120206
  3. NIFEDIPINE [Concomitant]
     Indication: HYPERTENSION
     Dosage: 1 DF, UNK
  4. ATORVASTATIN [Concomitant]
     Dosage: UNK UKN, UNK
     Dates: start: 20050101
  5. KARDEGIC [Concomitant]
     Dosage: 1 DF, UNK

REACTIONS (1)
  - DEATH [None]
